FAERS Safety Report 9409403 (Version 1)
Quarter: 2013Q2

REPORT INFORMATION
  Report Type: Spontaneous
  Country: DE (occurrence: DE)
  Receive Date: 20130415
  Receipt Date: 20130415
  Transmission Date: 20140414
  Serious: Yes (Other)
  Sender: FDA-Public Use
  Company Number: DE-20120262

PATIENT
  Age: 46 Year
  Sex: Female

DRUGS (1)
  1. DOTAREM [Suspect]
     Indication: COMPUTERISED TOMOGRAM HEAD
     Route: 042
     Dates: start: 20121122, end: 20121122

REACTIONS (5)
  - Bronchospasm [None]
  - Dyspnoea [None]
  - Urticaria [None]
  - Flushing [None]
  - Anaphylactic reaction [None]
